FAERS Safety Report 7547942 (Version 2)
Quarter: 2020Q3

REPORT INFORMATION
  Report Type: Report from Study
  Country: IL (occurrence: IL)
  Receive Date: 20100820
  Receipt Date: 20111123
  Transmission Date: 20201104
  Serious: Yes (Hospitalization)
  Sender: FDA-Public Use
  Company Number: IL-JNJFOC-20100804301

PATIENT
  Age: 54 Year
  Sex: Female
  Weight: 66 kg

DRUGS (7)
  1. AZATHIOPRINE. [Concomitant]
     Active Substance: AZATHIOPRINE
     Indication: COLITIS ULCERATIVE
     Route: 048
     Dates: start: 1997, end: 20100810
  2. SIMVASTATIN. [Concomitant]
     Active Substance: SIMVASTATIN
     Route: 048
  3. GOLIMUMAB [Suspect]
     Active Substance: GOLIMUMAB
     Route: 058
     Dates: start: 20090819
  4. ICHTHAMMOL [Concomitant]
     Active Substance: ICHTHAMMOL
     Route: 061
     Dates: start: 20091216
  5. GOLIMUMAB [Suspect]
     Active Substance: GOLIMUMAB
     Indication: COLITIS ULCERATIVE
     Route: 058
     Dates: start: 20100707
  6. GOLIMUMAB [Suspect]
     Active Substance: GOLIMUMAB
     Route: 058
     Dates: start: 20090929
  7. DIPYRONE [Concomitant]
     Active Substance: DIPYRONE
     Route: 048

REACTIONS (1)
  - Viral infection [Recovered/Resolved]

NARRATIVE: CASE EVENT DATE: 20100808
